FAERS Safety Report 6192695-X (Version None)
Quarter: 2009Q2

REPORT INFORMATION
  Report Type: 
  Country: None (occurrence: None)
  Receive Date: 20090518
  Receipt Date: 20090504
  Transmission Date: 20091009
  Serious: Yes (Other)
  Sender: FDA-Public Use
  Company Number: FR-ROCHE-631521

PATIENT
  Age: 51 Year
  Sex: Male

DRUGS (1)
  1. PEG-INTERFERON ALFA 2A (RO 25-8310) [Suspect]
     Dosage: FOR 16 WEEKS
     Route: 065

REACTIONS (4)
  - ANAEMIA [None]
  - GRAFT LOSS [None]
  - HAEMOLYTIC URAEMIC SYNDROME [None]
  - HEPATITIS C [None]
